FAERS Safety Report 24862875 (Version 1)
Quarter: 2025Q1

REPORT INFORMATION
  Report Type: Spontaneous
  Country: AU (occurrence: AU)
  Receive Date: 20250120
  Receipt Date: 20250120
  Transmission Date: 20250408
  Serious: Yes (Hospitalization, Other)
  Sender: SANDOZ
  Company Number: AU-002147023-NVSC2022AU204041

PATIENT
  Age: 16 Year
  Sex: Female

DRUGS (4)
  1. FLUOXETINE HYDROCHLORIDE [Suspect]
     Active Substance: FLUOXETINE HYDROCHLORIDE
     Indication: Mixed anxiety and depressive disorder
     Dosage: 20 MG, QD
     Route: 065
  2. FLUOXETINE HYDROCHLORIDE [Suspect]
     Active Substance: FLUOXETINE HYDROCHLORIDE
     Indication: Depression
     Route: 065
  3. COVID-19 vaccine [Concomitant]
     Indication: Product used for unknown indication
     Route: 065
  4. ENDEP [Concomitant]
     Active Substance: AMITRIPTYLINE HYDROCHLORIDE
     Indication: Product used for unknown indication
     Route: 065

REACTIONS (6)
  - Chest discomfort [Unknown]
  - Suicidal ideation [Not Recovered/Not Resolved]
  - Self-destructive behaviour [Unknown]
  - Anxiety [Unknown]
  - Self-destructive behaviour [Unknown]
  - Intentional overdose [Unknown]
